FAERS Safety Report 7341119-5 (Version None)
Quarter: 2011Q1

REPORT INFORMATION
  Report Type: 
  Country: None (occurrence: None)
  Receive Date: 20110309
  Receipt Date: 20110302
  Transmission Date: 20110831
  Serious: Yes (Hospitalization)
  Sender: FDA-Public Use
  Company Number: A0897576A

PATIENT
  Age: 80 Year
  Sex: Male
  Weight: 95.5 kg

DRUGS (6)
  1. LASIX [Concomitant]
  2. SIMVASTATIN [Concomitant]
  3. DETROL [Concomitant]
  4. METOPROLOL [Concomitant]
  5. AVANDIA [Suspect]
     Indication: DIABETES MELLITUS
     Dosage: 8MG PER DAY
     Dates: start: 20070401, end: 20070101
  6. HYZAAR [Concomitant]

REACTIONS (1)
  - CEREBROVASCULAR ACCIDENT [None]
